FAERS Safety Report 25674717 (Version 1)
Quarter: 2025Q3

REPORT INFORMATION
  Report Type: Spontaneous
  Country: EU (occurrence: EU)
  Receive Date: 20250813
  Receipt Date: 20250813
  Transmission Date: 20251020
  Serious: Yes (Other)
  Sender: GLAXOSMITHKLINE
  Company Number: EU-GSK-ES2025EME098219

PATIENT
  Age: 81 Year
  Sex: Female

DRUGS (2)
  1. MOMELOTINIB DIHYDROCHLORIDE [Suspect]
     Active Substance: MOMELOTINIB DIHYDROCHLORIDE
     Indication: Myelofibrosis
     Dosage: 200 MG, QD
  2. MOMELOTINIB DIHYDROCHLORIDE [Suspect]
     Active Substance: MOMELOTINIB DIHYDROCHLORIDE
     Indication: Anaemia

REACTIONS (1)
  - Vitreous haemorrhage [Unknown]
